FAERS Safety Report 23369136 (Version 1)
Quarter: 2024Q1

REPORT INFORMATION
  Report Type: Spontaneous
  Country: GB (occurrence: GB)
  Receive Date: 20240105
  Receipt Date: 20240105
  Transmission Date: 20240410
  Serious: Yes (Other)
  Sender: FDA-Public Use
  Company Number: None

PATIENT
  Age: 56 Year
  Weight: 82 kg

DRUGS (5)
  1. ALLOPURINOL [Suspect]
     Active Substance: ALLOPURINOL
     Indication: Blister
     Route: 065
     Dates: start: 20231228, end: 20231228
  2. ALLOPURINOL [Suspect]
     Active Substance: ALLOPURINOL
     Indication: Blister
     Route: 065
     Dates: start: 20230928, end: 20231228
  3. ALBUTEROL [Concomitant]
     Active Substance: ALBUTEROL
     Indication: Ill-defined disorder
     Dosage: PUFFS, IF NEEDED (AIRWAY - RELIEVER ...
     Route: 055
     Dates: start: 20230829
  4. SERETIDE [Concomitant]
     Active Substance: FLUTICASONE PROPIONATE\SALMETEROL XINAFOATE
     Indication: Ill-defined disorder
     Dosage: PUFFS
     Route: 055
     Dates: start: 20230829
  5. TAMOXIFEN [Concomitant]
     Active Substance: TAMOXIFEN
     Indication: Ill-defined disorder
     Dosage: (ANTI-CANCER) - STARTED NOVEMB...
     Dates: start: 20230829

REACTIONS (1)
  - Blister [Unknown]

NARRATIVE: CASE EVENT DATE: 20231228
